FAERS Safety Report 12654114 (Version 2)
Quarter: 2016Q4

REPORT INFORMATION
  Report Type: Report from Study
  Country: US (occurrence: US)
  Receive Date: 20160816
  Receipt Date: 20161212
  Transmission Date: 20170207
  Serious: Yes (Hospitalization)
  Sender: FDA-Public Use
  Company Number: US-ROCHE-1813372

PATIENT
  Age: 56 Year
  Sex: Female
  Weight: 89 kg

DRUGS (11)
  1. PERTUZUMAB [Suspect]
     Active Substance: PERTUZUMAB
     Route: 042
     Dates: start: 20160616, end: 20160616
  2. TRASTUZUMAB [Suspect]
     Active Substance: TRASTUZUMAB
     Indication: BREAST CANCER
     Dosage: CYCLE -1, OVER 90 MIN ON DAY 1 (620 MG) (LOADING DOSE)
     Route: 042
     Dates: start: 20160225
  3. DOCETAXEL. [Suspect]
     Active Substance: DOCETAXEL
     Indication: BREAST CANCER
     Dosage: LAST ADMINISTERED DATE- 28/APR/2016, OVER 60 MIN ON DAY 1 (75MG/M2)- CYCLE1- 6
     Route: 042
     Dates: start: 20160225
  4. TRASTUZUMAB [Suspect]
     Active Substance: TRASTUZUMAB
     Dosage: CYCLE 2, OVER 30-60 MIN ON DAY 1 (MAINTANENCE DOSE)?LAST ADMINISTERED DATE- 28/APR/2016
     Route: 042
     Dates: start: 20160323
  5. CARBOPLATIN. [Suspect]
     Active Substance: CARBOPLATIN
     Indication: BREAST CANCER
     Dosage: AUC=6 MG/ML/MIN, OVER 30-60MIN ON DAY 1 (CYCLE1-6)?LAST ADMINISTERED DATE- 28/APR/2016
     Route: 042
     Dates: start: 20160225
  6. CARBOPLATIN. [Suspect]
     Active Substance: CARBOPLATIN
     Route: 042
     Dates: start: 20160616, end: 20160616
  7. PERTUZUMAB [Suspect]
     Active Substance: PERTUZUMAB
     Dosage: CYCLE2-6, OVER 30-60 MIN ON DAY 1 (MAINTANENCE DOSE)?LAST ADMINISTERED DATE- 28/APR/2016
     Route: 042
     Dates: start: 20160323
  8. DOCETAXEL. [Suspect]
     Active Substance: DOCETAXEL
     Route: 042
     Dates: start: 20160616, end: 20160616
  9. PERTUZUMAB [Suspect]
     Active Substance: PERTUZUMAB
     Indication: BREAST CANCER
     Dosage: CYCLE 1, OVER 60 MIN ON DAY 1, LOADING DOSE
     Route: 042
     Dates: start: 20160225
  10. TRASTUZUMAB [Suspect]
     Active Substance: TRASTUZUMAB
     Route: 042
     Dates: start: 20160616, end: 20160616
  11. ARIMIDEX [Concomitant]
     Active Substance: ANASTROZOLE
     Route: 065
     Dates: start: 20160225

REACTIONS (3)
  - Anorectal infection [Recovered/Resolved]
  - Anaemia [Recovered/Resolved]
  - Cholecystitis [Recovered/Resolved]

NARRATIVE: CASE EVENT DATE: 20160512
